FAERS Safety Report 6603777-X (Version None)
Quarter: 2010Q1

REPORT INFORMATION
  Report Type: 
  Country: None (occurrence: None)
  Receive Date: 20100226
  Receipt Date: 20090126
  Transmission Date: 20100710
  Serious: No
  Sender: FDA-Public Use
  Company Number: A0765281A

PATIENT
  Age: 27 Year
  Sex: Female

DRUGS (2)
  1. LAMICTAL CD [Suspect]
     Indication: BIPOLAR DISORDER
     Dosage: 100MG TWICE PER DAY
     Route: 048
     Dates: start: 20070701
  2. BENADRYL [Concomitant]
     Indication: MULTIPLE ALLERGIES

REACTIONS (2)
  - DRY SKIN [None]
  - SKIN EXFOLIATION [None]
